FAERS Safety Report 5664472-7 (Version None)
Quarter: 2008Q1

REPORT INFORMATION
  Report Type: 
  Country: None (occurrence: None)
  Receive Date: 20080314
  Receipt Date: 20080311
  Transmission Date: 20080703
  Serious: Yes (Congenital Anomaly)
  Sender: FDA-Public Use
  Company Number: A0715550B

PATIENT
  Sex: Male

DRUGS (5)
  1. BUPROPION HCL [Suspect]
     Indication: MAJOR DEPRESSION
     Dosage: 300MG PER DAY
     Dates: start: 20070613
  2. CELEXA [Concomitant]
  3. PAXIL [Concomitant]
  4. VITAMIN TAB [Concomitant]
  5. ALBUTEROL [Concomitant]

REACTIONS (2)
  - CONGENITAL HAND MALFORMATION [None]
  - DRUG EXPOSURE DURING PREGNANCY [None]
